FAERS Safety Report 5189084-3 (Version None)
Quarter: 2006Q4

REPORT INFORMATION
  Report Type: 
  Country: None (occurrence: None)
  Receive Date: 20061215
  Receipt Date: 20061206
  Transmission Date: 20070319
  Serious: Yes (Hospitalization)
  Sender: FDA-Public Use
  Company Number: 232539

PATIENT
  Age: 8 Year
  Sex: Female
  Weight: 119.1 kg

DRUGS (2)
  1. NUTROPIN AQ [Suspect]
     Indication: SILVER-RUSSELL SYNDROME
     Dosage: SEE IMAGE
     Dates: start: 20000114
  2. LEVOTHYROXINE SODIUM [Concomitant]

REACTIONS (1)
  - PNEUMONIA [None]
